FAERS Safety Report 10036922 (Version 1)
Quarter: 2014Q1

REPORT INFORMATION
  Report Type: Spontaneous
  Country: US (occurrence: US)
  Receive Date: 20140326
  Receipt Date: 20140326
  Transmission Date: 20141002
  Serious: No
  Sender: FDA-Public Use
  Company Number: US-BIOGENIDEC-2014BI025766

PATIENT
  Sex: Male

DRUGS (11)
  1. TECFIDERA [Suspect]
     Indication: MULTIPLE SCLEROSIS
     Route: 048
     Dates: start: 201402
  2. CLONAZEPAM [Concomitant]
  3. EFFEXOR [Concomitant]
  4. ERGOCALCIFEROL [Concomitant]
  5. FLONASE [Concomitant]
  6. GABAPENTIN [Concomitant]
  7. HYDROCHLOROTHIZIDE [Concomitant]
  8. LISINOPRIL [Concomitant]
  9. LOVASTATIN [Concomitant]
  10. METFORMIN [Concomitant]
  11. TIZANIDINE [Concomitant]

REACTIONS (1)
  - Tooth abscess [Unknown]
